FAERS Safety Report 5902111-8 (Version None)
Quarter: 2008Q3

REPORT INFORMATION
  Report Type: 
  Country: None (occurrence: None)
  Receive Date: 20080929
  Receipt Date: 20080917
  Transmission Date: 20090109
  Serious: Yes (Hospitalization, Other)
  Sender: FDA-Public Use
  Company Number: FR-PFIZER INC-2008074521

PATIENT
  Sex: Male
  Weight: 71 kg

DRUGS (3)
  1. CHANTIX [Suspect]
     Indication: SMOKING CESSATION THERAPY
  2. NORFLOXACIN [Concomitant]
  3. ALPHA-ADRENOCEPTOR BLOCKING AGENTS [Concomitant]

REACTIONS (4)
  - BLADDER NECK OPERATION [None]
  - DEPRESSION [None]
  - DYSURIA [None]
  - PROSTATISM [None]
